FAERS Safety Report 4537168-2 (Version None)
Quarter: 2004Q4

REPORT INFORMATION
  Report Type: 
  Country: None (occurrence: None)
  Receive Date: 20041223
  Receipt Date: 20041208
  Transmission Date: 20050328
  Serious: Yes (Death)
  Sender: FDA-Public Use
  Company Number: PHBS2004JP16528

PATIENT
  Age: 63 Year
  Sex: Female
  Weight: 54 kg

DRUGS (9)
  1. DEPROMEL [Concomitant]
     Indication: PAIN
     Dosage: 75 MG/DAY
     Route: 048
     Dates: start: 20041130, end: 20041201
  2. VOLTAREN [Suspect]
     Indication: PAIN IN EXTREMITY
     Dosage: 50 MG/DAY
     Route: 054
     Dates: start: 20041125, end: 20041126
  3. VOLTAREN [Suspect]
     Dosage: 100 MG/DAY
     Route: 054
     Dates: start: 20041127, end: 20041201
  4. LOXONIN [Concomitant]
     Indication: PAIN
     Dosage: 180 MG/DAY
     Route: 048
     Dates: start: 20041127, end: 20041201
  5. SELBEX [Concomitant]
     Indication: PROPHYLAXIS AGAINST GASTROINTESTINAL ULCER
     Dosage: 150 MG/DAY
     Route: 048
     Dates: start: 20041127, end: 20041127
  6. LENDORMIN [Concomitant]
     Indication: INSOMNIA
     Dosage: 0.25 MG/DAY
     Route: 048
     Dates: start: 20041129, end: 20041130
  7. PHENLASE-S [Concomitant]
     Route: 048
     Dates: start: 20041127, end: 20041201
  8. GASTER D [Concomitant]
     Dosage: 40 MG/DAY
     Route: 048
     Dates: start: 20041101, end: 20041201
  9. IOHEXOL [Concomitant]
     Dosage: 10 ML/DAY
     Route: 042
     Dates: start: 20041201

REACTIONS (17)
  - ALANINE AMINOTRANSFERASE INCREASED [None]
  - ASPARTATE AMINOTRANSFERASE INCREASED [None]
  - BLOOD BILIRUBIN INCREASED [None]
  - BLOOD CREATININE INCREASED [None]
  - BLOOD LACTATE DEHYDROGENASE INCREASED [None]
  - BLOOD UREA INCREASED [None]
  - BODY TEMPERATURE DECREASED [None]
  - C-REACTIVE PROTEIN INCREASED [None]
  - DEPRESSED LEVEL OF CONSCIOUSNESS [None]
  - DISSEMINATED INTRAVASCULAR COAGULATION [None]
  - DYSPNOEA [None]
  - GAMMA-GLUTAMYLTRANSFERASE INCREASED [None]
  - HYPERHIDROSIS [None]
  - JAUNDICE [None]
  - LIVER DISORDER [None]
  - MONOCYTE COUNT INCREASED [None]
  - MULTI-ORGAN FAILURE [None]
